FAERS Safety Report 21347646 (Version 1)
Quarter: 2022Q3

REPORT INFORMATION
  Report Type: Spontaneous
  Country: CA (occurrence: CA)
  Receive Date: 20220919
  Receipt Date: 20220919
  Transmission Date: 20221027
  Serious: Yes (Other)
  Sender: FDA-Public Use
  Company Number: CA-JNJFOC-20220933100

PATIENT
  Age: 32 Year
  Sex: Female
  Weight: 87 kg

DRUGS (1)
  1. REMICADE [Suspect]
     Active Substance: INFLIXIMAB
     Indication: Crohn^s disease
     Route: 041

REACTIONS (8)
  - Pneumothorax [Unknown]
  - Bronchitis bacterial [Unknown]
  - Respiratory disorder [Unknown]
  - Nasal congestion [Unknown]
  - Maternal exposure during pregnancy [Unknown]
  - Cough [Unknown]
  - Off label use [Unknown]
  - Incorrect dose administered [Unknown]
